FAERS Safety Report 8552665-0 (Version None)
Quarter: 2012Q3

REPORT INFORMATION
  Report Type: 
  Country: None (occurrence: None)
  Receive Date: 20120731
  Receipt Date: 20120725
  Transmission Date: 20120928
  Serious: No
  Sender: FDA-Public Use
  Company Number: US-PFIZER INC-2012181559

PATIENT
  Sex: Female
  Weight: 62.585 kg

DRUGS (6)
  1. NORCO [Concomitant]
     Indication: BACK PAIN
     Dosage: UNK
  2. CHANTIX [Suspect]
     Indication: SMOKING CESSATION THERAPY
     Dosage: 0.5 MG, DAILY
     Dates: start: 20120720
  3. RESTORIL [Concomitant]
     Indication: SLEEP DISORDER
     Dosage: 30 MG, DAILY
  4. EFFEXOR [Suspect]
     Indication: MOOD SWINGS
     Dosage: UNK
     Dates: start: 20110101
  5. EFFEXOR [Suspect]
     Dosage: 75 MG, DAILY
     Dates: end: 20120720
  6. INDERAL [Concomitant]
     Indication: HYPERTENSION
     Dosage: ONE TABLET DAILY

REACTIONS (3)
  - NAUSEA [None]
  - MOOD SWINGS [None]
  - CRYING [None]
